FAERS Safety Report 21656850 (Version 1)
Quarter: 2022Q4

REPORT INFORMATION
  Report Type: Spontaneous
  Country: US (occurrence: US)
  Receive Date: 20221129
  Receipt Date: 20221129
  Transmission Date: 20230113
  Serious: No
  Sender: FDA-Public Use
  Company Number: US-ELI_LILLY_AND_COMPANY-US202210009205

PATIENT
  Sex: Male

DRUGS (1)
  1. ZYPREXA [Suspect]
     Active Substance: OLANZAPINE
     Indication: Product used for unknown indication
     Dosage: 60 ML, UNKNOWN
     Route: 065

REACTIONS (6)
  - Drooling [Unknown]
  - Vision blurred [Unknown]
  - Gastric disorder [Unknown]
  - Swollen tongue [Unknown]
  - Dry mouth [Unknown]
  - Diabetes mellitus [Unknown]
